FAERS Safety Report 9178136 (Version 2)
Quarter: 2013Q1

REPORT INFORMATION
  Report Type: Spontaneous
  Country: US (occurrence: US)
  Receive Date: 20130321
  Receipt Date: 20130326
  Transmission Date: 20140127
  Serious: Yes (Other)
  Sender: FDA-Public Use
  Company Number: US-ELI_LILLY_AND_COMPANY-US201303004313

PATIENT
  Sex: Female

DRUGS (3)
  1. HUMULIN NPH [Suspect]
     Indication: DIABETES MELLITUS
  2. HUMALOG 25% LISPRO, 75% NPL [Concomitant]
     Dosage: UNK
  3. NOVOLIN R [Concomitant]
     Indication: DIABETES MELLITUS

REACTIONS (2)
  - Cerebrovascular accident [Unknown]
  - Visual impairment [Not Recovered/Not Resolved]
